FAERS Safety Report 6814598-7 (Version None)
Quarter: 2010Q2

REPORT INFORMATION
  Report Type: 
  Country: None (occurrence: None)
  Receive Date: 20100629
  Receipt Date: 20100618
  Transmission Date: 20101027
  Serious: Yes (Other)
  Sender: FDA-Public Use
  Company Number: DE-1182169

PATIENT
  Age: 56 Year
  Sex: Female

DRUGS (2)
  1. AZOPT [Suspect]
     Indication: GLAUCOMA
     Dosage: 1 GTT BID OPHTHALMIC
     Route: 047
     Dates: start: 20100527, end: 20100607
  2. XALATAN [Concomitant]

REACTIONS (7)
  - ASTHENIA [None]
  - LARYNGITIS [None]
  - OESOPHAGITIS [None]
  - OROPHARYNGEAL PAIN [None]
  - PHARYNGEAL OEDEMA [None]
  - PRODUCTIVE COUGH [None]
  - SINUSITIS [None]
